FAERS Safety Report 13558711 (Version 1)
Quarter: 2017Q2

REPORT INFORMATION
  Report Type: Report from Study
  Country: BR (occurrence: BR)
  Receive Date: 20170518
  Receipt Date: 20170518
  Transmission Date: 20170830
  Serious: Yes (Other)
  Sender: FDA-Public Use
  Company Number: BR-BIOGEN-2017BI00386101

PATIENT
  Age: 25 Year
  Sex: Female

DRUGS (2)
  1. TECFIDERA [Suspect]
     Active Substance: DIMETHYL FUMARATE
     Indication: MULTIPLE SCLEROSIS
     Dosage: STARTING DOSE
     Route: 048
  2. TECFIDERA [Suspect]
     Active Substance: DIMETHYL FUMARATE
     Dosage: MAINTENANCE DOSE??LOT. GALS900 EXP. DATE DEC-2017
     Route: 048
     Dates: start: 20170331

REACTIONS (4)
  - Diabetes mellitus [Unknown]
  - Vomiting [Recovered/Resolved]
  - Viral infection [Not Recovered/Not Resolved]
  - Dehydration [Unknown]

NARRATIVE: CASE EVENT DATE: 20170405
